FAERS Safety Report 7064710-2 (Version None)
Quarter: 2010Q4

REPORT INFORMATION
  Report Type: 
  Country: None (occurrence: None)
  Receive Date: 20101027
  Receipt Date: 20001221
  Transmission Date: 20110411
  Serious: Yes (Congenital Anomaly)
  Sender: FDA-Public Use
  Company Number: GB-ROCHE-251528

PATIENT
  Age: 31 Year
  Sex: Female

DRUGS (5)
  1. COTRIM [Suspect]
     Route: 065
  2. DIDANOSINE [Concomitant]
  3. STAVUDINE [Concomitant]
  4. NEVIRAPINE [Concomitant]
  5. VITAMIN B [Concomitant]

REACTIONS (1)
  - CONGENITAL NEUROLOGICAL DISORDER [None]
